FAERS Safety Report 4923993-2 (Version None)
Quarter: 2006Q1

REPORT INFORMATION
  Report Type: 
  Country: None (occurrence: None)
  Receive Date: 20060221
  Receipt Date: 20060209
  Transmission Date: 20060701
  Serious: Yes (Death)
  Sender: FDA-Public Use
  Company Number: 2006020643

PATIENT
  Age: 86 Year
  Sex: Female

DRUGS (13)
  1. SULPERAZON (SULBACTAM, CEFOPERAZONE) [Suspect]
     Indication: PNEUMONIA
     Dosage: 2 GRAM (UNKNOWN), INTRAVENOUS
     Route: 042
     Dates: start: 20060126, end: 20060201
  2. ALDACTONE [Concomitant]
  3. LASIX [Concomitant]
  4. VERAPAMIL HYDROCHLORIDE [Concomitant]
  5. LANIRAPID (METILDIGOXIN) [Concomitant]
  6. MAGNESIUM OXIDE (MAGNESIUM OXIDE) [Concomitant]
  7. ZOLPIDEM TARTRATE [Concomitant]
  8. DIGOXIN [Concomitant]
  9. ASPIRIN [Concomitant]
  10. NITRODERM [Concomitant]
  11. GRAMALIL (TIAPRIDE HYDROCHLORIDE) [Concomitant]
  12. NEULEPTIL (PERICIAZINE) [Concomitant]
  13. SOLDEM 3A (CARBOHYDRATES NOS, POTASSIUM CHLORIDE, SODIUM CHLORIDE, SOD [Concomitant]

REACTIONS (2)
  - COMA HEPATIC [None]
  - SOMNOLENCE [None]
